FAERS Safety Report 22221745 (Version 1)
Quarter: 2023Q2

REPORT INFORMATION
  Report Type: Other
  Country: JP (occurrence: None)
  Receive Date: 20230418
  Receipt Date: 20230418
  Transmission Date: 20230721
  Serious: Yes (Other)
  Sender: FDA-Public Use
  Company Number: JP-ROCHE-3331724

PATIENT
  Age: 69 Year
  Sex: Female

DRUGS (5)
  1. RITUXAN [Suspect]
     Active Substance: RITUXIMAB
     Indication: Diffuse large B-cell lymphoma
     Dosage: 7 CYCLES
     Route: 041
     Dates: start: 2017, end: 201806
  2. CYCLOPHOSPHAMIDE [Suspect]
     Active Substance: CYCLOPHOSPHAMIDE
     Indication: Diffuse large B-cell lymphoma
     Dosage: 7 CYCLES
     Route: 065
     Dates: start: 2017, end: 201806
  3. DOXORUBICIN HYDROCHLORIDE [Suspect]
     Active Substance: DOXORUBICIN HYDROCHLORIDE
     Indication: Diffuse large B-cell lymphoma
     Dosage: 7 CYCLES
     Route: 065
     Dates: start: 2017, end: 201806
  4. VINCRISTINE SULFATE [Suspect]
     Active Substance: VINCRISTINE SULFATE
     Indication: Diffuse large B-cell lymphoma
     Dosage: 7 CYCLES
     Route: 065
     Dates: start: 2017, end: 201806
  5. PREDNISOLONE [Suspect]
     Active Substance: PREDNISOLONE
     Indication: Diffuse large B-cell lymphoma
     Dosage: 7 CYCLES
     Route: 065
     Dates: start: 2017, end: 201806

REACTIONS (4)
  - Febrile neutropenia [Unknown]
  - Anaemia [Unknown]
  - Chronic myelomonocytic leukaemia [Recovered/Resolved]
  - Acute promyelocytic leukaemia [Unknown]
